FAERS Safety Report 5649463-4 (Version None)
Quarter: 2008Q1

REPORT INFORMATION
  Report Type: 
  Country: None (occurrence: None)
  Receive Date: 20080131
  Receipt Date: 20071017
  Transmission Date: 20080703
  Serious: No
  Sender: FDA-Public Use
  Company Number: US200709001907

PATIENT
  Age: 70 Year
  Sex: Male

DRUGS (4)
  1. BYETTA [Suspect]
     Indication: TYPE 2 DIABETES MELLITUS
     Dosage: 5 UG, 2/D, SUBCUTANEOUS
     Route: 058
     Dates: start: 20070904, end: 20071001
  2. BYETTA [Suspect]
     Dosage: 10 UG, 2/D, SUBCUTANEOUS
     Route: 058
     Dates: start: 20071001
  3. STARLIX [Concomitant]
  4. METFORMIN HCL [Concomitant]

REACTIONS (4)
  - ACCIDENTAL NEEDLE STICK [None]
  - DECREASED APPETITE [None]
  - INJECTION SITE PAIN [None]
  - PUNCTURE SITE HAEMORRHAGE [None]
